FAERS Safety Report 17121630 (Version 1)
Quarter: 2019Q4

REPORT INFORMATION
  Report Type: Spontaneous
  Country: US (occurrence: US)
  Receive Date: 20191206
  Receipt Date: 20191206
  Transmission Date: 20200122
  Serious: Yes (Other)
  Sender: FDA-Public Use
  Company Number: US-GILEAD-2019-0440929

PATIENT
  Sex: Male

DRUGS (1)
  1. ATRIPLA [Suspect]
     Active Substance: EFAVIRENZ\EMTRICITABINE\TENOFOVIR DISOPROXIL FUMARATE
     Indication: HIV INFECTION
     Dosage: UNK
     Route: 048
     Dates: start: 2008, end: 2017

REACTIONS (9)
  - Bone density decreased [Unknown]
  - Anhedonia [Unknown]
  - Pain [Unknown]
  - Neck surgery [Unknown]
  - Hip arthroplasty [Unknown]
  - Economic problem [Unknown]
  - Tooth extraction [Unknown]
  - Emotional distress [Unknown]
  - Anxiety [Unknown]

NARRATIVE: CASE EVENT DATE: 2010
